FAERS Safety Report 11249788 (Version 1)
Quarter: 2015Q3

REPORT INFORMATION
  Report Type: Spontaneous
  Country: US (occurrence: US)
  Receive Date: 20150708
  Receipt Date: 20150708
  Transmission Date: 20151125
  Serious: Yes (Other)
  Sender: FDA-Public Use
  Company Number: US-ELI_LILLY_AND_COMPANY-US201006004871

PATIENT
  Age: 62 Year
  Sex: Female

DRUGS (3)
  1. 5-FU [Concomitant]
     Active Substance: FLUOROURACIL
  2. GEMZAR [Suspect]
     Active Substance: GEMCITABINE HYDROCHLORIDE
     Indication: PANCREATIC CARCINOMA
     Dosage: 1 D/F, 3+1 CYLCLE
  3. GEMZAR [Suspect]
     Active Substance: GEMCITABINE HYDROCHLORIDE
     Dosage: 2000 MG, DAYS 1, 8 AND 15 EVERY 28 DAYS

REACTIONS (5)
  - Asthenia [Not Recovered/Not Resolved]
  - White blood cell count decreased [Not Recovered/Not Resolved]
  - Headache [Not Recovered/Not Resolved]
  - Vomiting [Not Recovered/Not Resolved]
  - Platelet count decreased [Not Recovered/Not Resolved]
